FAERS Safety Report 5578176-2 (Version None)
Quarter: 2007Q4

REPORT INFORMATION
  Report Type: 
  Country: None (occurrence: None)
  Receive Date: 20071231
  Receipt Date: 20071220
  Transmission Date: 20080405
  Serious: Yes (Other)
  Sender: FDA-Public Use
  Company Number: US-PFIZER INC-2007108088

PATIENT
  Age: 69 Year
  Sex: Male
  Weight: 91 kg

DRUGS (4)
  1. LIPITOR [Suspect]
     Indication: HYPERCHOLESTEROLAEMIA
  2. ATENOLOL [Concomitant]
  3. NORVASC [Concomitant]
  4. ACETYLSALICYLIC ACID SRT [Concomitant]

REACTIONS (3)
  - BLOOD CREATININE INCREASED [None]
  - NEPHRITIS [None]
  - RENAL IMPAIRMENT [None]
